FAERS Safety Report 9725781 (Version 1)
Quarter: 2013Q4

REPORT INFORMATION
  Report Type: Report from Study
  Country: US (occurrence: US)
  Receive Date: 20131203
  Receipt Date: 20131203
  Transmission Date: 20140711
  Serious: Yes (Other)
  Sender: FDA-Public Use
  Company Number: US-TAKEDA-2013TJP000046

PATIENT
  Sex: Female

DRUGS (3)
  1. LEUPRORELIN [Suspect]
     Indication: UTERINE LEIOMYOMA
  2. IRON [Concomitant]
     Indication: PRODUCT USED FOR UNKNOWN INDICATION
  3. PRENATAL                           /00231801/ [Concomitant]
     Indication: HYPOTENSION

REACTIONS (5)
  - Haemorrhage [Unknown]
  - Drug ineffective [Unknown]
  - Hypotension [Unknown]
  - Hot flush [Unknown]
  - Dizziness [Unknown]
